FAERS Safety Report 6144317-1 (Version None)
Quarter: 2009Q2

REPORT INFORMATION
  Report Type: 
  Country: None (occurrence: None)
  Receive Date: 20090406
  Receipt Date: 20090324
  Transmission Date: 20091009
  Serious: Yes (Hospitalization)
  Sender: FDA-Public Use
  Company Number: TN-AVENTIS-200911306FR

PATIENT
  Age: 56 Year
  Sex: Male

DRUGS (3)
  1. SPIRAMYCINE METRONIDAZOLE [Suspect]
     Route: 048
     Dates: start: 20070507, end: 20070507
  2. SPIRAMYCINE METRONIDAZOLE [Suspect]
     Route: 048
     Dates: start: 20070508, end: 20070508
  3. ANTINEOPLASTIC AGENTS [Suspect]
     Route: 048
     Dates: start: 20070427

REACTIONS (4)
  - ANOREXIA [None]
  - ASTHENIA [None]
  - DYSPNOEA [None]
  - SPEECH DISORDER [None]
